FAERS Safety Report 15724719 (Version 1)
Quarter: 2018Q4

REPORT INFORMATION
  Report Type: Report from Study
  Country: US (occurrence: US)
  Receive Date: 20181214
  Receipt Date: 20181214
  Transmission Date: 20190205
  Serious: Yes (Other)
  Sender: FDA-Public Use
  Company Number: PHHO2017US017660

PATIENT
  Age: 70 Year
  Sex: Female

DRUGS (11)
  1. GSK1120212 [Suspect]
     Active Substance: TRAMETINIB
     Dosage: 1 UG, UNK
     Route: 048
     Dates: start: 20150616
  2. DESONIDE. [Concomitant]
     Active Substance: DESONIDE
     Indication: PRODUCT USED FOR UNKNOWN INDICATION
     Dosage: 15 G, UNK
     Route: 061
     Dates: start: 20140811
  3. GSK1120212 [Suspect]
     Active Substance: TRAMETINIB
     Indication: MALIGNANT MELANOMA
     Dosage: 1.5 MG, QD
     Route: 048
     Dates: start: 20140714, end: 20150602
  4. CLINDAMYCIN PHOSPHATE. [Concomitant]
     Active Substance: CLINDAMYCIN PHOSPHATE
     Dosage: UNK
     Route: 065
     Dates: start: 20140812
  5. LIDOCAINE. [Concomitant]
     Active Substance: LIDOCAINE
     Indication: PRODUCT USED FOR UNKNOWN INDICATION
     Dosage: 30 G, UNK
     Route: 061
     Dates: start: 20140714
  6. ACETAMINOPHEN. [Concomitant]
     Active Substance: ACETAMINOPHEN
     Indication: PRODUCT USED FOR UNKNOWN INDICATION
     Dosage: 120 MG, Q6H
     Route: 048
     Dates: start: 20140623
  7. OXYCODONE [Concomitant]
     Active Substance: OXYCODONE
     Indication: PRODUCT USED FOR UNKNOWN INDICATION
     Dosage: 120 MG, Q6H
     Route: 048
     Dates: start: 20140623
  8. METRONIDAZOLE. [Concomitant]
     Active Substance: METRONIDAZOLE
     Indication: PRODUCT USED FOR UNKNOWN INDICATION
     Dosage: 45 G, UNK
     Route: 061
     Dates: start: 20140812
  9. ACETONIDO DE TRIANCINOLONA [Concomitant]
     Indication: PRODUCT USED FOR UNKNOWN INDICATION
     Dosage: 45 G, UNK
     Route: 061
     Dates: start: 20140812
  10. MEDI4736 [Suspect]
     Active Substance: DURVALUMAB
     Indication: MALIGNANT MELANOMA
     Dosage: 10 MG/KG, Q2W
     Route: 065
     Dates: start: 20140714, end: 20150602
  11. MINOCYCLINE HYDROCHLORIDE. [Concomitant]
     Active Substance: MINOCYCLINE HYDROCHLORIDE
     Indication: PRODUCT USED FOR UNKNOWN INDICATION
     Dosage: 100 MG, QD
     Route: 048
     Dates: start: 20140812

REACTIONS (2)
  - Atrial fibrillation [Recovered/Resolved]
  - Ejection fraction decreased [Recovered/Resolved]

NARRATIVE: CASE EVENT DATE: 20150601
